FAERS Safety Report 22071249 (Version 1)
Quarter: 2023Q1

REPORT INFORMATION
  Report Type: Spontaneous
  Country: US (occurrence: None)
  Receive Date: 20230307
  Receipt Date: 20230307
  Transmission Date: 20230418
  Serious: No
  Sender: FDA-Public Use
  Company Number: None

PATIENT
  Age: 64 Year
  Sex: Female
  Weight: 65.77 kg

DRUGS (6)
  1. NURTEC ODT [Suspect]
     Active Substance: RIMEGEPANT SULFATE
     Indication: Migraine
     Dosage: OTHER QUANTITY : TABLET(S);?
     Route: 048
     Dates: start: 20230110, end: 20230219
  2. RIZATRIPTAN [Concomitant]
     Active Substance: RIZATRIPTAN
  3. DAILY MULTIVITAMIN [Concomitant]
  4. CALCIUM [Concomitant]
     Active Substance: CALCIUM
  5. Joint formula [Concomitant]
  6. Fat burner [Concomitant]

REACTIONS (2)
  - Alopecia [None]
  - Therapy cessation [None]

NARRATIVE: CASE EVENT DATE: 20230219
